FAERS Safety Report 10913092 (Version 1)
Quarter: 2015Q1

REPORT INFORMATION
  Report Type: Spontaneous
  Country: US (occurrence: None)
  Receive Date: 20150311
  Receipt Date: 20150311
  Transmission Date: 20150721
  Serious: No
  Sender: FDA-Public Use
  Company Number: 1210513-2015-00071

PATIENT
  Age: 76 Year
  Sex: Female
  Weight: 53.52 kg

DRUGS (1)
  1. WALMART EQUATE ORASOL [Suspect]
     Active Substance: BENZOCAINE
     Indication: ANALGESIC THERAPY
     Dosage: ORAL 047?
     Route: 048

REACTIONS (2)
  - Application site swelling [None]
  - Hypersensitivity [None]

NARRATIVE: CASE EVENT DATE: 20120502
